FAERS Safety Report 8165407-8 (Version None)
Quarter: 2012Q1

REPORT INFORMATION
  Report Type: 
  Country: None (occurrence: None)
  Receive Date: 20120223
  Receipt Date: 20120223
  Transmission Date: 20120608
  Serious: Yes (Life-Threatening)
  Sender: FDA-Public Use
  Company Number: None

PATIENT
  Age: 39 Year
  Sex: Male
  Weight: 83.9154 kg

DRUGS (2)
  1. DILANTIN [Suspect]
     Indication: CONVULSION
     Dosage: 300MG 3X A DAY
     Dates: start: 20100225
  2. DILANTIN [Suspect]
     Indication: CONVULSION
     Dosage: 300MG 3X A DAY
     Dates: start: 20100303

REACTIONS (2)
  - CONVULSION [None]
  - ANTICONVULSANT DRUG LEVEL BELOW THERAPEUTIC [None]
